FAERS Safety Report 16885015 (Version 2)
Quarter: 2020Q1

REPORT INFORMATION
  Report Type: Spontaneous
  Country: BE (occurrence: BE)
  Receive Date: 20191004
  Receipt Date: 20200108
  Transmission Date: 20200409
  Serious: Yes (Hospitalization, Other)
  Sender: FDA-Public Use
  Company Number: BE-BRISTOL-MYERS SQUIBB COMPANY-BMS-2019-093661

PATIENT
  Age: 76 Year
  Sex: Male
  Weight: 73 kg

DRUGS (1)
  1. NIVOLUMAB [Suspect]
     Active Substance: NIVOLUMAB
     Indication: MESOTHELIOMA
     Dosage: UNK
     Route: 065
     Dates: start: 20190305, end: 20190410

REACTIONS (4)
  - Blood count abnormal [Recovering/Resolving]
  - Pyrexia [Recovering/Resolving]
  - Malignant neoplasm progression [Unknown]
  - Intentional product use issue [Unknown]

NARRATIVE: CASE EVENT DATE: 2019
